FAERS Safety Report 4666915-4 (Version None)
Quarter: 2005Q2

REPORT INFORMATION
  Report Type: 
  Country: None (occurrence: None)
  Receive Date: 20050518
  Receipt Date: 20040928
  Transmission Date: 20051028
  Serious: Yes (Other)
  Sender: FDA-Public Use
  Company Number: 2004211208US

PATIENT
  Age: 39 Year
  Sex: Female
  Weight: 53.5 kg

DRUGS (1)
  1. DEPO-PROVERA [Suspect]
     Indication: MENSTRUAL DISCOMFORT
     Dosage: SINGLE INJECTION
     Dates: start: 20040301, end: 20040301

REACTIONS (3)
  - LIBIDO DECREASED [None]
  - MOOD SWINGS [None]
  - VAGINAL HAEMORRHAGE [None]
